FAERS Safety Report 5937223-6 (Version None)
Quarter: 2008Q4

REPORT INFORMATION
  Report Type: 
  Country: None (occurrence: None)
  Receive Date: 20081031
  Receipt Date: 20081024
  Transmission Date: 20090506
  Serious: Yes (Other)
  Sender: FDA-Public Use
  Company Number: CN-NOVOPROD-280173

PATIENT
  Age: 66 Year
  Sex: Female
  Weight: 55 kg

DRUGS (4)
  1. NOVOLIN R [Suspect]
     Indication: KETOACIDOSIS
     Dosage: 6 IU, QD
     Dates: start: 20080916, end: 20080919
  2. NOVOLIN R [Suspect]
     Dates: start: 20080919
  3. NOVOLIN N [Concomitant]
     Dates: start: 20080919
  4. CEFTRIAXONE [Concomitant]
     Indication: URINARY TRACT INFECTION
     Dosage: 4 G, QD
     Route: 042
     Dates: start: 20080916, end: 20080929

REACTIONS (3)
  - CHILLS [None]
  - PYREXIA [None]
  - RASH GENERALISED [None]
